FAERS Safety Report 20506503 (Version 1)
Quarter: 2022Q1

REPORT INFORMATION
  Report Type: Spontaneous
  Country: US (occurrence: None)
  Receive Date: 20220222
  Receipt Date: 20220222
  Transmission Date: 20220423
  Serious: No
  Sender: FDA-Public Use
  Company Number: None

PATIENT
  Age: 5 Month
  Sex: Male
  Weight: 9 kg

DRUGS (1)
  1. INFANTS MOTRIN [Suspect]
     Active Substance: IBUPROFEN
     Dates: start: 20211230, end: 20211230

REACTIONS (5)
  - Product contamination physical [None]
  - Vomiting [None]
  - Irritability [None]
  - Mucous stools [None]
  - Gastrointestinal disorder [None]

NARRATIVE: CASE EVENT DATE: 20211230
